FAERS Safety Report 8950606 (Version 3)
Quarter: 2013Q1

REPORT INFORMATION
  Report Type: Spontaneous
  Country: GB (occurrence: None)
  Receive Date: 20121127
  Receipt Date: 20121228
  Transmission Date: 20140127
  Serious: Yes (Other)
  Sender: FDA-Public Use
  Company Number: GER/UKI/12/0026698

PATIENT
  Age: 70 Year
  Sex: Female
  Weight: 72.2 kg

DRUGS (10)
  1. ATORVASTATIN [Suspect]
     Indication: DYSLIPIDAEMIA
     Dosage: 1 IN 1 D
  2. CARBAMAZEPINE [Suspect]
     Indication: NEURALGIA
     Dosage: 4 IN 1 D
  3. GLYCERYL TRINITRATE [Suspect]
     Indication: ISCHAEMIC HEART DISEASE PROPHYLAXIS
     Route: 060
  4. IBUPROFEN (IBUPROFEN) [Suspect]
     Indication: DYSMENORRHOEA
  5. ISOSORBIDE MONONITRATE [Suspect]
     Indication: ISCHAEMIC HEART DISEASE PROPHYLAXIS
     Dosage: 1 DOSAGE FORMS, 1 IN 1 D
  6. LANSOPRAZOLE (LANSOPRAZOLE) [Suspect]
     Indication: DUODENAL ULCER
     Dosage: 2 MG, 1 IN 1 AS REQUIRED
  7. METFORMIN (METFORMIN) [Suspect]
     Indication: TYPE 2 DIABETES MELLITUS
  8. LOPERAMIDE [Suspect]
     Indication: FUNCTIONAL GASTROINTESTINAL DISORDER
     Dosage: 1 IN 1 AS REQUIRED
  9. ATORVASTATIN (ATORVASTATIN) [Concomitant]
  10. CARBAMAZEPINE (CARBAMAZEPINE) [Concomitant]

REACTIONS (2)
  - Colitis microscopic [None]
  - Blood pressure decreased [None]
